FAERS Safety Report 4929994-2 (Version None)
Quarter: 2006Q1

REPORT INFORMATION
  Report Type: 
  Country: None (occurrence: None)
  Receive Date: 20060302
  Receipt Date: 20060208
  Transmission Date: 20060701
  Serious: Yes (Hospitalization)
  Sender: FDA-Public Use
  Company Number: PHBS2006JP02290

PATIENT
  Age: 74 Year
  Sex: Female

DRUGS (8)
  1. AMANTADINE HCL [Suspect]
     Indication: PARKINSON'S DISEASE
     Dosage: 300 MG/D
     Route: 048
  2. BROMOCRIPTINE MESYLATE [Suspect]
     Indication: PARKINSON'S DISEASE
     Dosage: 15 MG/D
     Route: 048
  3. FP [Suspect]
     Indication: PARKINSON'S DISEASE
     Dosage: 2.5 MG/D
     Route: 048
  4. DROXIDOPA [Suspect]
     Indication: PARKINSON'S DISEASE
     Route: 048
  5. LEVODOPA [Suspect]
     Indication: PARKINSON'S DISEASE
     Dosage: 600 MG/D
  6. LEVODOPA [Suspect]
     Dosage: 800 MG/DAY
  7. LEVODOPA [Suspect]
     Dosage: 500 MG/DAY
  8. CARBIDOPA [Suspect]
     Indication: PARKINSON'S DISEASE
     Dosage: 60 MG/DAY

REACTIONS (27)
  - ACTIVITIES OF DAILY LIVING IMPAIRED [None]
  - AKINESIA [None]
  - ANXIETY [None]
  - BLOOD CREATINE PHOSPHOKINASE INCREASED [None]
  - BLOOD LACTATE DEHYDROGENASE INCREASED [None]
  - BLOOD PRESSURE INCREASED [None]
  - BLOOD SODIUM INCREASED [None]
  - CEREBRAL ATROPHY [None]
  - CHILLS [None]
  - DEPRESSION [None]
  - DIFFICULTY IN WALKING [None]
  - DYSKINESIA [None]
  - FALL [None]
  - FEAR [None]
  - HALLUCINATION [None]
  - HEART RATE INCREASED [None]
  - HYPERHIDROSIS [None]
  - MUSCLE ATROPHY [None]
  - MUSCLE RIGIDITY [None]
  - MYOCLONUS [None]
  - NEUROLEPTIC MALIGNANT SYNDROME [None]
  - OVERDOSE [None]
  - PALLOR [None]
  - PERONEAL NERVE PALSY [None]
  - PYREXIA [None]
  - TREMOR [None]
  - WHITE BLOOD CELL COUNT INCREASED [None]
